FAERS Safety Report 5199403-X (Version None)
Quarter: 2006Q4

REPORT INFORMATION
  Report Type: 
  Country: None (occurrence: None)
  Receive Date: 20061229
  Receipt Date: 20061218
  Transmission Date: 20070319
  Serious: Yes (Death)
  Sender: FDA-Public Use
  Company Number: 2006BI018717

PATIENT
  Age: 64 Year
  Sex: Female

DRUGS (2)
  1. AVONEX [Suspect]
     Indication: MULTIPLE SCLEROSIS
     Dates: start: 20011004
  2. MEDICATIONS NOS [Concomitant]

REACTIONS (2)
  - HAEMORRHAGE [None]
  - INTRAVENTRICULAR HAEMORRHAGE [None]
